FAERS Safety Report 5509752-0 (Version None)
Quarter: 2007Q4

REPORT INFORMATION
  Report Type: 
  Country: None (occurrence: None)
  Receive Date: 20071107
  Receipt Date: 20071107
  Transmission Date: 20080405
  Serious: Yes (Hospitalization)
  Sender: FDA-Public Use
  Company Number: None

PATIENT
  Sex: Male
  Weight: 122.2 kg

DRUGS (2)
  1. TAXOTERE [Suspect]
     Dosage: 175 MG
  2. PREDNISONE TAB [Concomitant]

REACTIONS (1)
  - PULMONARY EMBOLISM [None]
